FAERS Safety Report 4524879-8 (Version None)
Quarter: 2004Q4

REPORT INFORMATION
  Report Type: 
  Country: None (occurrence: None)
  Receive Date: 20041210
  Receipt Date: 20041101
  Transmission Date: 20050328
  Serious: Yes (Death)
  Sender: FDA-Public Use
  Company Number: M2004-1805

PATIENT
  Age: 38 Year
  Sex: Female

DRUGS (5)
  1. LISINOPRIL [Suspect]
     Indication: HYPERTENSION
  2. METOCLOPRAMIDE [Suspect]
     Indication: POST PROCEDURAL VOMITING
     Dosage: SINGLE DOSE OF 10MG IV
     Route: 042
  3. MEPIVACAINE [Concomitant]
  4. MIDAZOLAM HCL [Concomitant]
  5. PROPOFOL [Concomitant]

REACTIONS (1)
  - BRADYCARDIA [None]
